FAERS Safety Report 4592254-6 (Version None)
Quarter: 2005Q1

REPORT INFORMATION
  Report Type: 
  Country: None (occurrence: None)
  Receive Date: 20050228
  Receipt Date: 20041105
  Transmission Date: 20050727
  Serious: No
  Sender: FDA-Public Use
  Company Number: US-BRISTOL-MYERS SQUIBB COMPANY-12758231

PATIENT
  Age: 53 Year
  Sex: Female

DRUGS (5)
  1. ABILIFY [Suspect]
     Indication: BIPOLAR DISORDER
     Dosage: TAKEN FOR 3-4 MONTHS
  2. KLONOPIN [Concomitant]
  3. LEXAPRO [Concomitant]
  4. TRILEPTAL [Concomitant]
  5. ZOCOR [Concomitant]

REACTIONS (1)
  - PHLEBITIS [None]
